FAERS Safety Report 5520902-2 (Version None)
Quarter: 2007Q4

REPORT INFORMATION
  Report Type: 
  Country: None (occurrence: None)
  Receive Date: 20071119
  Receipt Date: 20071114
  Transmission Date: 20080405
  Serious: Yes (Other)
  Sender: FDA-Public Use
  Company Number: D0055146A

PATIENT
  Age: 70 Year
  Sex: Male

DRUGS (2)
  1. AVANDAMET [Suspect]
     Dosage: 1002MG TWICE PER DAY
     Route: 048
     Dates: start: 20070319, end: 20070718
  2. METFORMIN HYDROCHLORIDE [Concomitant]
     Route: 065

REACTIONS (2)
  - ANAEMIA [None]
  - PERFORMANCE STATUS DECREASED [None]
